FAERS Safety Report 19476643 (Version 2)
Quarter: 2021Q3

REPORT INFORMATION
  Report Type: Other
  Country: SK (occurrence: SK)
  Receive Date: 20210630
  Receipt Date: 20210706
  Transmission Date: 20211014
  Serious: Yes (Other)
  Sender: FDA-Public Use
  Company Number: SK-ROCHE-2858490

PATIENT
  Age: 39 Year
  Sex: Female

DRUGS (5)
  1. RITUXIMAB. [Suspect]
     Active Substance: RITUXIMAB
     Indication: DIFFUSE LARGE B-CELL LYMPHOMA STAGE III
     Route: 065
  2. VINCRISTINE [Suspect]
     Active Substance: VINCRISTINE
     Indication: DIFFUSE LARGE B-CELL LYMPHOMA STAGE III
     Route: 065
  3. DOXIL [Suspect]
     Active Substance: DOXORUBICIN HYDROCHLORIDE
     Indication: DIFFUSE LARGE B-CELL LYMPHOMA STAGE III
     Route: 065
  4. PREDNISONE. [Suspect]
     Active Substance: PREDNISONE
     Indication: DIFFUSE LARGE B-CELL LYMPHOMA STAGE III
     Route: 065
  5. ENDOXAN [Suspect]
     Active Substance: CYCLOPHOSPHAMIDE
     Indication: DIFFUSE LARGE B-CELL LYMPHOMA STAGE III
     Route: 065

REACTIONS (3)
  - Polyneuropathy [Unknown]
  - Pneumonia [Unknown]
  - Off label use [Unknown]
